FAERS Safety Report 5664699-4 (Version None)
Quarter: 2008Q1

REPORT INFORMATION
  Report Type: 
  Country: None (occurrence: None)
  Receive Date: 20080314
  Receipt Date: 20080310
  Transmission Date: 20080703
  Serious: Yes (Hospitalization, Disabling, Other)
  Sender: FDA-Public Use
  Company Number: IE-WYE-G00909308

PATIENT
  Sex: Male
  Weight: 93 kg

DRUGS (9)
  1. EFFEXOR XR [Suspect]
     Indication: DEPRESSION
     Route: 048
     Dates: start: 20060401
  2. EFFEXOR XR [Suspect]
     Route: 048
     Dates: start: 20071117
  3. EFFEXOR XR [Suspect]
     Dosage: 150MG DAILY
  4. EFFEXOR XR [Suspect]
     Route: 048
     Dates: start: 20080124
  5. EFFEXOR XR [Suspect]
     Dosage: 150MG DAILY
     Route: 048
  6. GLUCOSAMINE SULFATE [Concomitant]
     Indication: ARTHRITIS
     Route: 048
     Dates: start: 20060401
  7. LIPITOR [Concomitant]
     Indication: TYPE 2 DIABETES MELLITUS
     Route: 048
     Dates: start: 20051001
  8. GLUCOPHAGE [Concomitant]
     Indication: TYPE 2 DIABETES MELLITUS
     Route: 048
     Dates: start: 20051001
  9. ASPIRIN [Concomitant]
     Indication: TYPE 2 DIABETES MELLITUS
     Route: 048
     Dates: start: 20051001

REACTIONS (22)
  - ABNORMAL DREAMS [None]
  - ANOREXIA [None]
  - ANXIETY [None]
  - CONFUSIONAL STATE [None]
  - CONVULSION [None]
  - DEPRESSED LEVEL OF CONSCIOUSNESS [None]
  - DIZZINESS [None]
  - DRUG WITHDRAWAL SYNDROME [None]
  - DRY MOUTH [None]
  - DYSPHEMIA [None]
  - FATIGUE [None]
  - GAIT DISTURBANCE [None]
  - HYPERHIDROSIS [None]
  - INSOMNIA [None]
  - PARAESTHESIA [None]
  - PRURITUS [None]
  - RHINORRHOEA [None]
  - SOMNOLENCE [None]
  - TINNITUS [None]
  - TREMOR [None]
  - VISUAL DISTURBANCE [None]
  - YAWNING [None]
